FAERS Safety Report 8343608-3 (Version None)
Quarter: 2012Q2

REPORT INFORMATION
  Report Type: 
  Country: None (occurrence: None)
  Receive Date: 20120508
  Receipt Date: 20120502
  Transmission Date: 20120825
  Serious: Yes (Life-Threatening, Hospitalization, Other)
  Sender: FDA-Public Use
  Company Number: SE-TEVA-336545USA

PATIENT

DRUGS (3)
  1. TREANDA [Suspect]
     Dates: start: 20110721
  2. LENALIDOMIDE [Suspect]
     Dates: start: 20110721
  3. RITUXIMAB [Suspect]
     Dates: start: 20110721

REACTIONS (2)
  - SEPSIS [None]
  - TETANUS [None]
